FAERS Safety Report 7370742-7 (Version None)
Quarter: 2011Q1

REPORT INFORMATION
  Report Type: 
  Country: None (occurrence: None)
  Receive Date: 20110323
  Receipt Date: 20110315
  Transmission Date: 20110831
  Serious: Yes (Hospitalization)
  Sender: FDA-Public Use
  Company Number: FR-BRISTOL-MYERS SQUIBB COMPANY-15614209

PATIENT
  Age: 72 Year
  Sex: Female

DRUGS (7)
  1. GLUCOSAMINE [Suspect]
     Route: 048
     Dates: start: 20101101, end: 20110207
  2. IRBESARTAN [Suspect]
     Route: 048
     Dates: start: 20100101, end: 20110125
  3. BURINEX [Suspect]
     Route: 048
     Dates: start: 20101101, end: 20110207
  4. NABUMETONE [Suspect]
     Route: 048
     Dates: start: 20101201, end: 20110207
  5. ARSENICUM ALBUM [Suspect]
     Dosage: ARSENICUM ALBUM HOMEOPTHIC PREPARATION
     Dates: end: 20110207
  6. HARPAGOPHYTUM [Suspect]
     Dosage: HARPAGOPHYTUM ELUSANE  IN CAPS
     Route: 048
     Dates: end: 20110207
  7. HAMAMELIS VIRGINIANA [Suspect]
     Dates: end: 20110207

REACTIONS (1)
  - TUBULOINTERSTITIAL NEPHRITIS [None]
